FAERS Safety Report 17761698 (Version 1)
Quarter: 2020Q2

REPORT INFORMATION
  Report Type: Spontaneous
  Country: FR (occurrence: FR)
  Receive Date: 20200508
  Receipt Date: 20200508
  Transmission Date: 20200714
  Serious: Yes (Death, Life-Threatening, Other)
  Sender: FDA-Public Use
  Company Number: FR-CADILA HEALTHCARE LIMITED-FR-ZYDUS-023227

PATIENT

DRUGS (10)
  1. METFORMIN [Suspect]
     Active Substance: METFORMIN HYDROCHLORIDE
     Indication: TYPE 2 DIABETES MELLITUS
     Dosage: 2 DOSAGE FORM,2 DF, 1X/DAY,(INTERVAL :1 DAYS)
     Route: 048
     Dates: end: 20171025
  2. RAMIPRIL. [Suspect]
     Active Substance: RAMIPRIL
     Indication: HYPERTENSION
     Dosage: 1 DOSAGE FORM,1 DF, 1X/DAY,(INTERVAL :1 DAYS)
     Route: 048
  3. PREVISCAN (FRANCE) [Suspect]
     Active Substance: FLUINDIONE
     Indication: ANTICOAGULANT THERAPY
     Dosage: (INTERVAL :1 DAYS)
     Route: 048
     Dates: end: 20171025
  4. BISOPROLOL [Suspect]
     Active Substance: BISOPROLOL
     Indication: HYPERTENSION
     Dosage: UNK, 1X/DAY,(INTERVAL :1 DAYS)
     Route: 048
     Dates: end: 20171025
  5. PANTOPRAZOLE [Suspect]
     Active Substance: PANTOPRAZOLE
     Indication: PRODUCT USED FOR UNKNOWN INDICATION
     Route: 048
     Dates: end: 20171025
  6. ALPRAZOLAM. [Suspect]
     Active Substance: ALPRAZOLAM
     Indication: ANXIETY
     Dosage: UNK, 1X/DAY,(INTERVAL :1 DAYS)
     Route: 048
     Dates: end: 20171025
  7. RAMIPRIL. [Suspect]
     Active Substance: RAMIPRIL
     Indication: ANXIETY
     Dosage: 1.25 DOSAGE FORM,(INTERVAL :1 DAYS)
     Route: 048
     Dates: end: 20171025
  8. PANTOPRAZOLE [Suspect]
     Active Substance: PANTOPRAZOLE
     Indication: PRODUCT USED FOR UNKNOWN INDICATION
     Route: 048
     Dates: end: 20171025
  9. ESIDREX [Suspect]
     Active Substance: HYDROCHLOROTHIAZIDE
     Indication: HYPERTENSION
     Dosage: 1 DOSAGE FORM,(INTERVAL :1 DAYS)
     Route: 048
     Dates: end: 20171025
  10. FUROSEMIDE. [Suspect]
     Active Substance: FUROSEMIDE
     Indication: HYPERTENSION
     Route: 048
     Dates: end: 20171025

REACTIONS (6)
  - Anaemia [Recovered/Resolved]
  - Acute kidney injury [Recovered/Resolved]
  - Hyperkalaemia [Recovered/Resolved]
  - Lactic acidosis [Recovered/Resolved]
  - Shock haemorrhagic [Unknown]
  - Death [Fatal]

NARRATIVE: CASE EVENT DATE: 20171025
